FAERS Safety Report 6165543-1 (Version None)
Quarter: 2009Q2

REPORT INFORMATION
  Report Type: 
  Country: None (occurrence: None)
  Receive Date: 20090421
  Receipt Date: 20090421
  Transmission Date: 20091009
  Serious: Yes (Life-Threatening, Hospitalization)
  Sender: FDA-Public Use
  Company Number: None

PATIENT
  Age: 54 Year
  Sex: Male

DRUGS (1)
  1. LOTREL [Suspect]
     Dosage: 10/20 PO DAILY
     Route: 048

REACTIONS (1)
  - ANGIOEDEMA [None]
